FAERS Safety Report 12263631 (Version 2)
Quarter: 2016Q2

REPORT INFORMATION
  Report Type: Report from Study
  Country: PH (occurrence: PH)
  Receive Date: 20160413
  Receipt Date: 20160516
  Transmission Date: 20160815
  Serious: Yes (Hospitalization, Other)
  Sender: FDA-Public Use
  Company Number: PHHY2016PH016647

PATIENT
  Age: 50 Year
  Sex: Female

DRUGS (5)
  1. GLIVEC [Suspect]
     Active Substance: IMATINIB MESYLATE
     Indication: CHRONIC MYELOID LEUKAEMIA
     Dosage: UNK
     Route: 065
     Dates: start: 2003
  2. GLIVEC [Suspect]
     Active Substance: IMATINIB MESYLATE
     Dosage: (400-600 MG), QD
     Route: 065
     Dates: end: 20160408
  3. GLIVEC [Suspect]
     Active Substance: IMATINIB MESYLATE
     Dosage: 600 MG, QD (FOR 3 YEARS)
     Route: 065
  4. GLIVEC [Suspect]
     Active Substance: IMATINIB MESYLATE
     Dosage: 600 MG, QD
     Route: 065
  5. GLIVEC [Suspect]
     Active Substance: IMATINIB MESYLATE
     Dosage: 800 MG, QD
     Route: 065

REACTIONS (12)
  - Pulmonary tuberculosis [Recovering/Resolving]
  - Pleural effusion [Recovering/Resolving]
  - Philadelphia chromosome positive [Unknown]
  - Tachypnoea [Recovering/Resolving]
  - Sinus tachycardia [Recovering/Resolving]
  - Drug intolerance [Unknown]
  - Pulmonary mass [Recovering/Resolving]
  - Dyspnoea [Recovering/Resolving]
  - Cough [Recovering/Resolving]
  - Pneumonia [Recovering/Resolving]
  - Hypotension [Recovering/Resolving]
  - Supraventricular tachycardia [Recovering/Resolving]

NARRATIVE: CASE EVENT DATE: 20160414
